FAERS Safety Report 10648141 (Version 1)
Quarter: 2014Q4

REPORT INFORMATION
  Report Type: Spontaneous
  Country: US (occurrence: None)
  Receive Date: 20141211
  Receipt Date: 20141211
  Transmission Date: 20150529
  Serious: Yes (Disabling)
  Sender: FDA-Public Use
  Company Number: None

PATIENT
  Age: 47 Year
  Sex: Female
  Weight: 83.92 kg

DRUGS (1)
  1. CIPROFLOXACIN. [Suspect]
     Active Substance: CIPROFLOXACIN
     Indication: KIDNEY INFECTION
     Dosage: ONE TABLET 2XS DAILY
     Route: 048

REACTIONS (4)
  - Tendonitis [None]
  - Neck pain [None]
  - Activities of daily living impaired [None]
  - Arthralgia [None]

NARRATIVE: CASE EVENT DATE: 20140920
